FAERS Safety Report 6222076-1 (Version None)
Quarter: 2009Q2

REPORT INFORMATION
  Report Type: 
  Country: None (occurrence: None)
  Receive Date: 20090608
  Receipt Date: 20090608
  Transmission Date: 20091009
  Serious: Yes (Other)
  Sender: FDA-Public Use
  Company Number: None

PATIENT
  Age: 52 Year
  Sex: Female
  Weight: 70.7611 kg

DRUGS (1)
  1. MACROBID [Suspect]
     Indication: CYSTITIS
     Dosage: 1 PILL 2 TIMES DAILY PO
     Route: 048
     Dates: start: 20090601, end: 20090604

REACTIONS (6)
  - BEDRIDDEN [None]
  - CHILLS [None]
  - HEADACHE [None]
  - NECK PAIN [None]
  - PAIN [None]
  - RASH [None]
